FAERS Safety Report 7079544-2 (Version None)
Quarter: 2010Q4

REPORT INFORMATION
  Report Type: 
  Country: None (occurrence: None)
  Receive Date: 20101022
  Receipt Date: 20101007
  Transmission Date: 20110411
  Serious: Yes (Hospitalization)
  Sender: FDA-Public Use
  Company Number: AUR-APL-2010-02554

PATIENT
  Age: 73 Year
  Sex: Female

DRUGS (10)
  1. SIMVASTATIN [Suspect]
     Dosage: 10MG, DAILY, ORAL
     Route: 048
     Dates: end: 20100701
  2. NORVASC [Suspect]
     Indication: HYPERTENSION
     Dosage: 5MG, DAILY, ORAL
     Route: 048
     Dates: end: 20100701
  3. ENALAPRIL [Suspect]
     Indication: HYPERTENSION
     Dosage: 10 MG, DAILY, ORAL
     Route: 048
  4. OMEPRAZOLE [Concomitant]
  5. METFORMIN [Concomitant]
  6. METHOTREXATE [Concomitant]
  7. ZOPIKLON [Concomitant]
  8. ACETAMINOPHEN [Concomitant]
  9. BETAPRED [Concomitant]
  10. TAVEGYL [Concomitant]

REACTIONS (4)
  - BLOOD GLUCOSE DECREASED [None]
  - HYPOTENSION [None]
  - NAUSEA [None]
  - VOMITING [None]
